FAERS Safety Report 14122527 (Version 1)
Quarter: 2017Q4

REPORT INFORMATION
  Report Type: Report from Study
  Country: US (occurrence: US)
  Receive Date: 20171024
  Receipt Date: 20171024
  Transmission Date: 20180321
  Serious: Yes (Hospitalization)
  Sender: FDA-Public Use
  Company Number: US-ACTELION-A-NJ2017-161269

PATIENT
  Age: 53 Year
  Sex: Female

DRUGS (16)
  1. METFORMIN [Concomitant]
     Active Substance: METFORMIN HYDROCHLORIDE
  2. ASA [Concomitant]
     Active Substance: ASPIRIN
  3. CLARITIN [Concomitant]
     Active Substance: LORATADINE
  4. CYMBALTA [Concomitant]
     Active Substance: DULOXETINE HYDROCHLORIDE
  5. NITROFURANTOIN MACROCRYSTALS [Concomitant]
     Active Substance: NITROFURANTOIN
  6. SINGULAIR [Concomitant]
     Active Substance: MONTELUKAST SODIUM
  7. VITAMIN D [Concomitant]
     Active Substance: CHOLECALCIFEROL
  8. EPIPEN [Concomitant]
     Active Substance: EPINEPHRINE
  9. ATENOLOL. [Concomitant]
     Active Substance: ATENOLOL
  10. NEURONTIN [Concomitant]
     Active Substance: GABAPENTIN
  11. OPSUMIT [Suspect]
     Active Substance: MACITENTAN
     Indication: PULMONARY ARTERIAL HYPERTENSION
     Dosage: 10 MG, QD
     Route: 048
     Dates: start: 20160817
  12. DIFLUCAN [Concomitant]
     Active Substance: FLUCONAZOLE
  13. FLONASE [Concomitant]
     Active Substance: FLUTICASONE PROPIONATE
  14. SIMVASTATIN. [Concomitant]
     Active Substance: SIMVASTATIN
  15. VOLTAREN [Concomitant]
     Active Substance: DICLOFENAC SODIUM
  16. AUGMENTIN [Concomitant]
     Active Substance: AMOXICILLIN\CLAVULANATE POTASSIUM

REACTIONS (4)
  - Blood pressure increased [Unknown]
  - Dyspnoea [Unknown]
  - Chest pain [Unknown]
  - Aortic aneurysm [Unknown]

NARRATIVE: CASE EVENT DATE: 201707
